FAERS Safety Report 8287580-3 (Version None)
Quarter: 2012Q2

REPORT INFORMATION
  Report Type: 
  Country: None (occurrence: None)
  Receive Date: 20120416
  Receipt Date: 20120407
  Transmission Date: 20120825
  Serious: Yes (Other)
  Sender: FDA-Public Use
  Company Number: PHHY2012IN031189

PATIENT
  Sex: Male

DRUGS (2)
  1. DICLOFENAC SODIUM [Suspect]
     Indication: GOUTY ARTHRITIS
     Dosage: UNK
     Route: 048
     Dates: start: 20120324
  2. AMLONG-A [Concomitant]
     Indication: HYPERTENSION
     Dosage: UNK

REACTIONS (4)
  - PRURITUS GENERALISED [None]
  - PULSE ABSENT [None]
  - LOSS OF CONSCIOUSNESS [None]
  - UNRESPONSIVE TO STIMULI [None]
